FAERS Safety Report 19762479 (Version 1)
Quarter: 2021Q3

REPORT INFORMATION
  Report Type: Spontaneous
  Country: AU (occurrence: AU)
  Receive Date: 20210829
  Receipt Date: 20210829
  Transmission Date: 20211014
  Serious: No
  Sender: FDA-Public Use
  Company Number: None

PATIENT
  Sex: Female
  Weight: 52 kg

DRUGS (2)
  1. ADVANTAN OINTMENT METHYLPREDN ISONE ACEPONATE 0.1%W/W [Suspect]
     Active Substance: METHYLPREDNISOLONE ACEPONATE
     Indication: DERMATITIS CONTACT
     Dosage: ?          QUANTITY:15 GRAMS;?
     Route: 062
  2. IMPLANON [Concomitant]
     Active Substance: ETONOGESTREL

REACTIONS (9)
  - Skin discharge [None]
  - Economic problem [None]
  - Stress [None]
  - Skin exfoliation [None]
  - Alopecia [None]
  - Impaired work ability [None]
  - Erythema [None]
  - Steroid withdrawal syndrome [None]
  - Drug dependence [None]
